FAERS Safety Report 13746602 (Version 1)
Quarter: 2017Q3

REPORT INFORMATION
  Report Type: Spontaneous
  Country: GB (occurrence: GB)
  Receive Date: 20170712
  Receipt Date: 20170712
  Transmission Date: 20171127
  Serious: Yes (Death, Other)
  Sender: FDA-Public Use
  Company Number: GB-BAYER-2017-130983

PATIENT
  Age: 72 Year
  Sex: Male

DRUGS (3)
  1. ACETYLSALICYLIC ACID({=100 MG) [Suspect]
     Active Substance: ASPIRIN
     Dosage: UNK
  2. PRASUGREL. [Interacting]
     Active Substance: PRASUGREL
     Dosage: UNK
  3. HEPARIN [Interacting]
     Active Substance: HEPARIN SODIUM
     Dosage: 50 U, UNK

REACTIONS (7)
  - Haemorrhagic transformation stroke [None]
  - Subarachnoid haematoma [None]
  - Cerebral haematoma [None]
  - Ischaemic stroke [None]
  - Labelled drug-drug interaction medication error [None]
  - Drug administration error [None]
  - Cardiac arrest [Fatal]
